FAERS Safety Report 14569921 (Version 1)
Quarter: 2018Q1

REPORT INFORMATION
  Report Type: Spontaneous
  Country: US (occurrence: US)
  Receive Date: 20180225
  Receipt Date: 20180225
  Transmission Date: 20180509
  Serious: No
  Sender: FDA-Public Use
  Company Number: US-JNJFOC-20180208244

PATIENT
  Age: 90 Year
  Sex: Male
  Weight: 58.97 kg

DRUGS (2)
  1. TYLENOL EXTRA STRENGTH [Suspect]
     Active Substance: ACETAMINOPHEN
     Indication: PAIN
     Dosage: 12 DAYS AGO
     Route: 048
     Dates: start: 201801, end: 20180204
  2. BABY ASPIRIN [Concomitant]
     Active Substance: ASPIRIN
     Indication: PAIN
     Route: 065

REACTIONS (2)
  - Dysgeusia [Recovering/Resolving]
  - Drug administration error [Unknown]
